FAERS Safety Report 10495414 (Version 1)
Quarter: 2014Q3

REPORT INFORMATION
  Report Type: Spontaneous
  Country: US (occurrence: None)
  Receive Date: 20140815
  Receipt Date: 20140815
  Transmission Date: 20150326
  Serious: Yes (Hospitalization, Other)
  Sender: FDA-Public Use
  Company Number: ADR-2014-00863

PATIENT
  Age: 66 Year
  Sex: Male
  Weight: 77.11 kg

DRUGS (1)
  1. LIORESAL [Suspect]
     Active Substance: BACLOFEN
     Indication: MUSCLE SPASTICITY
     Dosage: 200 MCG/DAY

REACTIONS (9)
  - Myalgia [None]
  - Hyperhidrosis [None]
  - Pain [None]
  - Mental status changes [None]
  - Blood creatinine increased [None]
  - Influenza like illness [None]
  - Altered state of consciousness [None]
  - Drug withdrawal syndrome [None]
  - Muscle spasticity [None]

NARRATIVE: CASE EVENT DATE: 20140512
